FAERS Safety Report 8132785-5 (Version None)
Quarter: 2012Q1

REPORT INFORMATION
  Report Type: 
  Country: None (occurrence: None)
  Receive Date: 20120208
  Receipt Date: 20120125
  Transmission Date: 20120608
  Serious: Yes (Hospitalization)
  Sender: FDA-Public Use
  Company Number: 1000024525

PATIENT
  Age: 63 Year
  Sex: Male
  Weight: 50 kg

DRUGS (5)
  1. TETRAMIDE (MIANSERIN HYDRCHLORIDE) [Concomitant]
  2. PURSENNID (SENNOSIDE A+B CALCIUM) [Concomitant]
  3. MEMANTINE HYDROCHLORIDE [Suspect]
     Indication: DEMENTIA ALZHEIMER'S TYPE
     Dosage: 5 MG (5 MG, 1 IN 1 D), ORAL
     Route: 048
     Dates: start: 20110705, end: 20110713
  4. ARICEPT [Concomitant]
  5. SULPIRIDE [Concomitant]

REACTIONS (10)
  - DEPRESSED LEVEL OF CONSCIOUSNESS [None]
  - ASPARTATE AMINOTRANSFERASE INCREASED [None]
  - HEADACHE [None]
  - BLOOD ALKALINE PHOSPHATASE INCREASED [None]
  - MUSCULAR WEAKNESS [None]
  - EYE MOVEMENT DISORDER [None]
  - GUILLAIN-BARRE SYNDROME [None]
  - ABULIA [None]
  - NASOPHARYNGITIS [None]
  - DECREASED APPETITE [None]
